FAERS Safety Report 25413781 (Version 1)
Quarter: 2025Q2

REPORT INFORMATION
  Report Type: Spontaneous
  Country: US (occurrence: None)
  Receive Date: 20250607
  Receipt Date: 20250607
  Transmission Date: 20250716
  Serious: Yes (Hospitalization)
  Sender: FDA-CTU
  Company Number: None

PATIENT
  Age: 65 Year
  Sex: Female
  Weight: 90 kg

DRUGS (12)
  1. PYRIDOXINE\TIRZEPATIDE [Suspect]
     Active Substance: PYRIDOXINE\TIRZEPATIDE
     Indication: Weight decreased
     Dosage: OTHER QUANTITY : 1 INJECTION(S);?OTHER FREQUENCY : 1 WEEK;?
     Route: 058
     Dates: start: 20240701
  2. DONEPEZIL [Concomitant]
     Active Substance: DONEPEZIL
  3. LISINOPRIL [Concomitant]
     Active Substance: LISINOPRIL
  4. Levothyroxine Tab 0.112 Mg [Concomitant]
  5. TIRZEPATIDE [Concomitant]
     Active Substance: TIRZEPATIDE
  6. PYRIDOXINE HYDROCHLORIDE [Concomitant]
     Active Substance: PYRIDOXINE HYDROCHLORIDE
  7. FLUTICASONE PROPIONATE [Concomitant]
     Active Substance: FLUTICASONE PROPIONATE
  8. ALLEGRA ALLERGY [Concomitant]
     Active Substance: FEXOFENADINE HYDROCHLORIDE
  9. Aspirin 81 Mg. [Concomitant]
  10. Multivitamin. [Concomitant]
  11. VITAMIN D [Concomitant]
     Active Substance: VITAMIN D NOS
  12. FIBER THERAPY (CALCIUM POLYCARBOPHIL) [Concomitant]
     Active Substance: CALCIUM POLYCARBOPHIL

REACTIONS (4)
  - Vitreous floaters [None]
  - Retinal tear [None]
  - Blindness unilateral [None]
  - Photopsia [None]

NARRATIVE: CASE EVENT DATE: 20250421
